FAERS Safety Report 7534499-9 (Version None)
Quarter: 2011Q2

REPORT INFORMATION
  Report Type: 
  Country: None (occurrence: None)
  Receive Date: 20110609
  Receipt Date: 20090604
  Transmission Date: 20111010
  Serious: Yes (Life-Threatening, Hospitalization, Other)
  Sender: FDA-Public Use
  Company Number: PHHY2008GB13206

PATIENT
  Sex: Female

DRUGS (9)
  1. MOVIPREP [Concomitant]
     Indication: CONSTIPATION
     Dosage: UNK
     Route: 048
     Dates: start: 20070622
  2. LORAZEPAM [Concomitant]
     Dosage: 1-2 MG DAILY
     Route: 048
     Dates: start: 20070618
  3. PREDNISOLONE [Concomitant]
     Dosage: 2 MG, QD
  4. ATROVENT [Concomitant]
     Indication: ASTHMA
     Dosage: UNK
     Dates: start: 20070622
  5. SENNA-MINT WAF [Concomitant]
     Indication: CONSTIPATION
     Dosage: UNK
     Route: 048
     Dates: start: 20070622
  6. CLOZAPINE [Suspect]
     Indication: SCHIZOPHRENIA
     Dosage: 450 MG, UNK
     Route: 048
     Dates: start: 20050314
  7. ALBUTEROL [Concomitant]
     Indication: ASTHMA
     Dosage: UNK
     Dates: start: 20070622
  8. LANSOPRAZOLE [Concomitant]
     Indication: GASTRITIS
     Dosage: 30 MG, QID
     Route: 048
     Dates: start: 20070622
  9. SERETIDE [Concomitant]
     Indication: ASTHMA
     Dosage: 2 DF, BID

REACTIONS (6)
  - NEOPLASM MALIGNANT [None]
  - OROPHARYNGEAL PAIN [None]
  - THROAT CANCER [None]
  - PHARYNGEAL OEDEMA [None]
  - DYSPHAGIA [None]
  - LARYNGEAL CANCER [None]
